FAERS Safety Report 7394350-7 (Version None)
Quarter: 2011Q2

REPORT INFORMATION
  Report Type: 
  Country: None (occurrence: None)
  Receive Date: 20110405
  Receipt Date: 20110330
  Transmission Date: 20111010
  Serious: Yes (Life-Threatening, Hospitalization)
  Sender: FDA-Public Use
  Company Number: NL-ROCHE-743067

PATIENT
  Weight: 75 kg

DRUGS (12)
  1. CAPECITABINE [Suspect]
     Route: 065
     Dates: start: 20101124
  2. PANTOPRAZOLE [Concomitant]
     Dosage: FOR YEARS
     Route: 048
  3. EPIRUBICIN [Suspect]
     Indication: GASTRIC CANCER
     Dosage: LAST DOSE: 01 NOV 2010, INTERRUPTED
     Route: 065
     Dates: start: 20101101
  4. EPIRUBICIN [Suspect]
     Route: 065
     Dates: start: 20101124
  5. PANTOPRAZOLE [Concomitant]
     Route: 048
  6. CAPECITABINE [Suspect]
     Indication: GASTRIC CANCER
     Dosage: LAST DOSE; 14 DECEMBER 2010,INTERRUPTED
     Route: 065
     Dates: start: 20101101
  7. SYMBICORT [Concomitant]
     Route: 055
  8. FINASTERIDE [Concomitant]
     Dates: start: 20070101
  9. CISPLATIN [Suspect]
     Indication: GASTRIC CANCER
     Dosage: LAST DOSE; 01 NOV 2010, INTERRUPTED
     Route: 065
     Dates: start: 20101101
  10. CISPLATIN [Suspect]
     Route: 065
     Dates: start: 20101124
  11. TAMSULOSINE [Concomitant]
     Route: 048
     Dates: start: 20070101
  12. METOPROLOL [Concomitant]
     Dosage: FOR YEARS
     Route: 048

REACTIONS (3)
  - TRANSIENT ISCHAEMIC ATTACK [None]
  - CEREBROVASCULAR ACCIDENT [None]
  - ISCHAEMIC CEREBRAL INFARCTION [None]
